FAERS Safety Report 25930066 (Version 1)
Quarter: 2025Q4

REPORT INFORMATION
  Report Type: Spontaneous
  Country: US (occurrence: None)
  Receive Date: 20251015
  Receipt Date: 20251015
  Transmission Date: 20260117
  Serious: Yes (Other)
  Sender: FDA-CTU
  Company Number: None

PATIENT
  Age: 55 Year
  Sex: Female
  Weight: 81 kg

DRUGS (7)
  1. VENLAFAXINE HYDROCHLORIDE [Suspect]
     Active Substance: VENLAFAXINE HYDROCHLORIDE
     Indication: Premenstrual dysphoric disorder
     Dosage: OTHER QUANTITY : 2 CAPSULE(S);?
     Route: 048
  2. VENLAFAXINE [Concomitant]
     Active Substance: VENLAFAXINE HYDROCHLORIDE
  3. PROPRANOLOL [Concomitant]
     Active Substance: PROPRANOLOL HYDROCHLORIDE
  4. LEVOTHYROXINE [Concomitant]
     Active Substance: LEVOTHYROXINE
  5. ZYRTEC [Concomitant]
     Active Substance: CETIRIZINE HYDROCHLORIDE
  6. PEPCID [Concomitant]
     Active Substance: FAMOTIDINE
  7. VITAMINS [Concomitant]
     Active Substance: VITAMINS

REACTIONS (16)
  - Headache [None]
  - Hyperhidrosis [None]
  - Weight increased [None]
  - Emotional disorder [None]
  - Hypoaesthesia [None]
  - Cognitive disorder [None]
  - Memory impairment [None]
  - Withdrawal syndrome [None]
  - Dizziness [None]
  - Nausea [None]
  - Cerebral disorder [None]
  - Fatigue [None]
  - Anxiety [None]
  - Fear [None]
  - Insomnia [None]
  - Decreased activity [None]

NARRATIVE: CASE EVENT DATE: 20050101
